FAERS Safety Report 5495245-6 (Version None)
Quarter: 2007Q4

REPORT INFORMATION
  Report Type: 
  Country: None (occurrence: None)
  Receive Date: 20071024
  Receipt Date: 20071012
  Transmission Date: 20080405
  Serious: Yes (Disabling)
  Sender: FDA-Public Use
  Company Number: FR-PFIZER INC-2007069030

PATIENT
  Sex: Female

DRUGS (3)
  1. VIRACEPT [Suspect]
     Indication: DRUG USE FOR UNKNOWN INDICATION
     Dosage: TEXT:10 DOSE FORM 2 X 1 DAY
     Dates: start: 20050207, end: 20050221
  2. PROGUANIL [Concomitant]
     Dates: start: 20041215, end: 20050330
  3. CHLOROQUINE PHOSPHATE [Concomitant]
     Dates: start: 20041215, end: 20050330

REACTIONS (7)
  - ABDOMINAL PAIN [None]
  - ANOREXIA [None]
  - ASTHENIA [None]
  - DIARRHOEA [None]
  - NAUSEA [None]
  - VOMITING [None]
  - WEIGHT DECREASED [None]
